FAERS Safety Report 12380017 (Version 4)
Quarter: 2017Q1

REPORT INFORMATION
  Report Type: Report from Study
  Country: CA (occurrence: CA)
  Receive Date: 20160518
  Receipt Date: 20170222
  Transmission Date: 20170428
  Serious: Yes (Hospitalization, Other)
  Sender: FDA-Public Use
  Company Number: CA-BEH-2016062795

PATIENT
  Age: 50 Year
  Sex: Female

DRUGS (2)
  1. HIZENTRA [Suspect]
     Active Substance: HUMAN IMMUNOGLOBULIN G
     Indication: SECONDARY IMMUNODEFICIENCY
     Dosage: 10 G, QW
     Route: 058
     Dates: start: 20151221
  2. HIZENTRA [Suspect]
     Active Substance: HUMAN IMMUNOGLOBULIN G
     Indication: PLASMA CELL MYELOMA
     Dosage: 6 G, QW
     Route: 058

REACTIONS (6)
  - Thoracic vertebral fracture [Unknown]
  - Back pain [Unknown]
  - Infection [Unknown]
  - Bedridden [Unknown]
  - Spinal operation [Unknown]
  - Immobile [Unknown]

NARRATIVE: CASE EVENT DATE: 20160506
